FAERS Safety Report 8990140 (Version 3)
Quarter: 2013Q3

REPORT INFORMATION
  Report Type: Spontaneous
  Country: US (occurrence: US)
  Receive Date: 20121228
  Receipt Date: 20130904
  Transmission Date: 20140515
  Serious: Yes (Hospitalization)
  Sender: FDA-Public Use
  Company Number: US-B.I. PHARMACEUTICALS,INC./RIDGEFIELD-2012-BI-04343BP

PATIENT
  Age: 64 Year
  Sex: Female
  Weight: 117.93 kg

DRUGS (11)
  1. PRADAXA [Suspect]
     Indication: ATRIAL FIBRILLATION
     Dates: start: 20110822, end: 20120330
  2. ASPIRIN [Concomitant]
  3. GLUCOVANCE [Concomitant]
  4. MICARDIS [Concomitant]
  5. VYTORIN [Concomitant]
  6. OMEPRAZOLE [Concomitant]
  7. JANUVIA [Concomitant]
  8. TOPROL [Concomitant]
  9. METFORMIN [Concomitant]
  10. BALSALAZIDE DISODIUM [Concomitant]
  11. CENTRUM [Concomitant]

REACTIONS (1)
  - Lower gastrointestinal haemorrhage [Unknown]
